FAERS Safety Report 6382397-9 (Version None)
Quarter: 2009Q3

REPORT INFORMATION
  Report Type: 
  Country: None (occurrence: None)
  Receive Date: 20090928
  Receipt Date: 20090928
  Transmission Date: 20100115
  Serious: No
  Sender: FDA-Public Use
  Company Number: None

PATIENT
  Age: 74 Year
  Sex: Male
  Weight: 55.2 kg

DRUGS (1)
  1. MORPHINE [Suspect]
     Dosage: 15 MG AM PO
     Route: 048
     Dates: start: 20081010, end: 20081011

REACTIONS (2)
  - HYPOVENTILATION [None]
  - MIOSIS [None]
